FAERS Safety Report 9186967 (Version 2)
Quarter: 2013Q3

REPORT INFORMATION
  Report Type: Report from Study
  Country: US (occurrence: US)
  Receive Date: 20130325
  Receipt Date: 20130927
  Transmission Date: 20140515
  Serious: Yes (Hospitalization)
  Sender: FDA-Public Use
  Company Number: US-SHIRE-ALL1-2013-01635

PATIENT
  Age: 9 Year
  Sex: Male
  Weight: 24.1 kg

DRUGS (2)
  1. IDURSULFASE [Suspect]
     Indication: MUCOPOLYSACCHARIDOSIS II
     Dosage: 12.05 MG, (2 VIALS) 1X/WEEK
     Route: 041
     Dates: start: 20080314
  2. LANSOPRAZOLE [Concomitant]
     Indication: GASTROINTESTINAL DISORDER
     Dosage: 15 MG, 1X/DAY:QD
     Route: 048

REACTIONS (1)
  - Ventriculo-peritoneal shunt [Recovered/Resolved]
